FAERS Safety Report 6781904-1 (Version None)
Quarter: 2010Q2

REPORT INFORMATION
  Report Type: 
  Country: None (occurrence: None)
  Receive Date: 20100618
  Receipt Date: 20100618
  Transmission Date: 20101027
  Serious: Yes (Life-Threatening, Other)
  Sender: FDA-Public Use
  Company Number: None

PATIENT
  Age: 59 Year
  Sex: Male
  Weight: 100 kg

DRUGS (3)
  1. LISINOPRIL [Suspect]
     Indication: DIABETES PROPHYLAXIS
     Dosage: 5MG/DAY PRIOR TO MARCH 2009 DAILY ORAL ; 5MG/2 X DAY DURING EVENT 2X 5 MG/ DAILY ORAL
     Route: 048
     Dates: start: 20100201, end: 20100501
  2. GLYBURIDE [Concomitant]
  3. METFORMIN HCL [Concomitant]

REACTIONS (4)
  - CARPAL TUNNEL DECOMPRESSION [None]
  - CYANOSIS [None]
  - DRUG HYPERSENSITIVITY [None]
  - PRESYNCOPE [None]
